FAERS Safety Report 7767835-9 (Version None)
Quarter: 2011Q3

REPORT INFORMATION
  Report Type: 
  Country: None (occurrence: None)
  Receive Date: 20110922
  Receipt Date: 20110223
  Transmission Date: 20111222
  Serious: No
  Sender: FDA-Public Use
  Company Number: US-ASTRAZENECA-2007UW02094

PATIENT
  Age: 42 Year
  Sex: Male
  Weight: 88 kg

DRUGS (33)
  1. SEROQUEL [Suspect]
     Route: 048
     Dates: start: 19980429, end: 20010719
  2. LITHIUM CARBONATE [Concomitant]
     Dates: start: 19990601, end: 20000101
  3. DESYREL [Concomitant]
     Dosage: 150 MG, TWO TABLETS AT NIGHT
     Route: 048
     Dates: start: 19990212
  4. AMBIEN [Concomitant]
     Dosage: 5 MG TO 10 MG, AT NIGHT
     Route: 048
     Dates: start: 19981001
  5. SEROQUEL [Suspect]
     Indication: PSYCHOTIC DISORDER
     Dosage: 25 MG-600 MG
     Route: 048
     Dates: start: 19980401, end: 20060201
  6. SEROQUEL [Suspect]
     Route: 048
     Dates: start: 19980429, end: 20010719
  7. GEODON [Concomitant]
     Dosage: 80 MG-160 MG
     Dates: start: 20010601, end: 20010901
  8. GEODON [Concomitant]
     Route: 048
     Dates: start: 20010503, end: 20020207
  9. RISPERDAL [Concomitant]
     Indication: BIPOLAR DISORDER
     Dosage: 2MG-4MG
     Dates: start: 20020101
  10. DEPAKOTE [Concomitant]
     Indication: BIPOLAR DISORDER
     Dates: start: 20000901, end: 20050701
  11. LOXITANE [Concomitant]
     Dates: start: 19961001, end: 19980601
  12. SPIRIVA [Concomitant]
     Dosage: DAILY
     Route: 048
     Dates: start: 20060607
  13. SEROQUEL [Suspect]
     Dosage: 200 MG TO 600 MG, TWO TABS AT NIGHT
     Route: 048
     Dates: start: 20010930, end: 20061012
  14. PREVACID [Concomitant]
     Route: 048
     Dates: start: 20010212
  15. ACTOS [Concomitant]
     Indication: TYPE 2 DIABETES MELLITUS
     Route: 048
     Dates: start: 20050202
  16. SEROQUEL [Suspect]
     Dosage: 200 MG TO 600 MG, TWO TABS AT NIGHT
     Route: 048
     Dates: start: 20010930, end: 20061012
  17. ZYPREXA [Concomitant]
     Dates: start: 19970501, end: 19970901
  18. DEPAKOTE [Concomitant]
     Dosage: 250 MG IN THE MORNING, 1500 MG AT NIGHT
     Route: 048
     Dates: start: 19950824
  19. KLONOPIN [Concomitant]
     Indication: ANXIETY
     Dosage: 0.5 MG TO 1 MG, AT NIGHT, EVERY MORNING
     Route: 048
     Dates: start: 20001024
  20. HALOPERIDOL [Concomitant]
     Dosage: 5 MG EVERY FOUR HOURS PRN
     Route: 048
     Dates: start: 20060506
  21. SEROQUEL [Suspect]
     Indication: BIPOLAR DISORDER
     Dosage: 25 MG-600 MG
     Route: 048
     Dates: start: 19980401, end: 20060201
  22. SEROQUEL [Suspect]
     Route: 048
     Dates: start: 19980429, end: 20010719
  23. KLONOPIN [Concomitant]
     Indication: HYPOSOMNIA
     Dosage: 0.5 MG TO 1 MG, AT NIGHT, EVERY MORNING
     Route: 048
     Dates: start: 20001024
  24. CLARITIN [Concomitant]
     Dosage: 5 MG TO 10 MG, DAILY, TWO TIMES A DAY
     Route: 048
     Dates: start: 20000505
  25. TOPAMAX [Concomitant]
     Indication: NEURALGIA
     Dosage: 50 MG ONE IN MORNING AND TWO AT NIGHT
     Route: 048
     Dates: start: 20051219, end: 20060618
  26. SEROQUEL [Suspect]
     Indication: SLEEP DISORDER
     Dosage: 25 MG-600 MG
     Route: 048
     Dates: start: 19980401, end: 20060201
  27. RISPERDAL [Concomitant]
     Dosage: 1 MG TO 3 MG, EVERY MORNING, AT NIGHT, TWO TIMES A DAY
     Route: 048
     Dates: start: 20010930
  28. LOPRESSOR [Concomitant]
     Indication: HYPERTENSION
     Dosage: 50 MG TO 100 MG, TWO TIMES A DAY
     Route: 048
     Dates: start: 19970723, end: 20060620
  29. TRICOR [Concomitant]
     Indication: HYPERLIPIDAEMIA
     Dosage: 134 MG TO 160 MG, DAILY, AT NIGHT
     Route: 048
     Dates: start: 20030609
  30. VISTARIL [Concomitant]
     Route: 048
     Dates: start: 19950824
  31. NEURONTIN [Concomitant]
     Indication: BIPOLAR DISORDER
     Route: 048
     Dates: start: 20060607
  32. SEROQUEL [Suspect]
     Dosage: 200 MG TO 600 MG, TWO TABS AT NIGHT
     Route: 048
     Dates: start: 20010930, end: 20061012
  33. TOPAMAX [Concomitant]
     Indication: BIPOLAR DISORDER
     Dosage: 50 MG ONE IN MORNING AND TWO AT NIGHT
     Route: 048
     Dates: start: 20051219, end: 20060618

REACTIONS (6)
  - HEPATIC ENZYME ABNORMAL [None]
  - GASTRIC ULCER [None]
  - PNEUMONIA [None]
  - TYPE 2 DIABETES MELLITUS [None]
  - HYPERTENSION [None]
  - LIVER FUNCTION TEST ABNORMAL [None]
